FAERS Safety Report 7394398-2 (Version None)
Quarter: 2011Q2

REPORT INFORMATION
  Report Type: 
  Country: None (occurrence: None)
  Receive Date: 20110405
  Receipt Date: 20110322
  Transmission Date: 20111010
  Serious: Yes (Hospitalization)
  Sender: FDA-Public Use
  Company Number: PHHY2011EC23038

PATIENT
  Sex: Male

DRUGS (2)
  1. ANALGAN [Concomitant]
     Dosage: UNK
  2. RASILEZ [Suspect]
     Indication: HYPERTENSION
     Dosage: 150 MG, QD
     Dates: start: 20090101, end: 20090830

REACTIONS (1)
  - PNEUMONIA [None]
